FAERS Safety Report 10842921 (Version 1)
Quarter: 2015Q1

REPORT INFORMATION
  Report Type: Report from Study
  Country: US (occurrence: US)
  Receive Date: 20150220
  Receipt Date: 20150220
  Transmission Date: 20150721
  Serious: Yes (Hospitalization)
  Sender: FDA-Public Use
  Company Number: US-ABBVIE-14P-163-1258903-00

PATIENT
  Age: 64 Year
  Sex: Female
  Weight: 49.49 kg

DRUGS (4)
  1. SULFAMYLON [Suspect]
     Active Substance: MAFENIDE ACETATE
     Indication: WOUND INFECTION
  2. HUMIRA [Suspect]
     Active Substance: ADALIMUMAB
     Route: 058
     Dates: start: 20140605
  3. HUMIRA [Suspect]
     Active Substance: ADALIMUMAB
     Route: 058
     Dates: start: 20140731
  4. HUMIRA [Suspect]
     Active Substance: ADALIMUMAB
     Indication: PYODERMA GANGRENOSUM
     Route: 058
     Dates: start: 20140522, end: 20140522

REACTIONS (8)
  - Sepsis [Unknown]
  - Drug ineffective [Unknown]
  - Peripheral swelling [Unknown]
  - Erythema [Unknown]
  - Wound infection [Recovering/Resolving]
  - Skin fissures [Unknown]
  - Pyrexia [Recovered/Resolved]
  - Dry skin [Unknown]

NARRATIVE: CASE EVENT DATE: 20140707
